FAERS Safety Report 5598438-2 (Version None)
Quarter: 2008Q1

REPORT INFORMATION
  Report Type: 
  Country: None (occurrence: None)
  Receive Date: 20080122
  Receipt Date: 20080117
  Transmission Date: 20080703
  Serious: Yes (Life-Threatening, Hospitalization)
  Sender: FDA-Public Use
  Company Number: JP-ASTRAZENECA-2007AP08154

PATIENT
  Age: 64 Year
  Sex: Female
  Weight: 63 kg

DRUGS (5)
  1. CRESTOR [Suspect]
     Indication: HYPERCHOLESTEROLAEMIA
     Route: 048
     Dates: start: 20071122, end: 20071212
  2. BAKTAR [Suspect]
     Indication: PROPHYLAXIS
     Route: 048
     Dates: start: 20070921, end: 20071211
  3. TAKEPRON [Suspect]
     Indication: REFLUX OESOPHAGITIS
     Route: 048
     Dates: start: 20071102, end: 20071213
  4. PREDONINE [Concomitant]
     Indication: IDIOPATHIC THROMBOCYTOPENIC PURPURA
     Dosage: THREE TIMES DAILY (20 MG, 10 MG, 5 MG)
     Route: 048
     Dates: start: 20070827
  5. AMOBANTES [Concomitant]
     Indication: INSOMNIA
     Route: 048
     Dates: start: 20070915, end: 20071212

REACTIONS (1)
  - AGRANULOCYTOSIS [None]
